FAERS Safety Report 17952998 (Version 4)
Quarter: 2020Q3

REPORT INFORMATION
  Report Type: Spontaneous
  Country: US (occurrence: US)
  Receive Date: 20200627
  Receipt Date: 20200806
  Transmission Date: 20201103
  Serious: No
  Sender: FDA-Public Use
  Company Number: US-ASTRAZENECA-2020SE79111

PATIENT
  Sex: Female

DRUGS (1)
  1. BYDUREON BCISE [Suspect]
     Active Substance: EXENATIDE
     Indication: TYPE 2 DIABETES MELLITUS
     Route: 065

REACTIONS (9)
  - Blood glucose increased [Not Recovered/Not Resolved]
  - Wrong technique in device usage process [Unknown]
  - Injection site mass [Recovering/Resolving]
  - Device failure [Unknown]
  - Depression [Unknown]
  - Product use issue [Recovered/Resolved]
  - Injection site haemorrhage [Unknown]
  - Arterial rupture [Unknown]
  - Intentional product misuse [Recovered/Resolved]
